FAERS Safety Report 6160511-8 (Version None)
Quarter: 2009Q2

REPORT INFORMATION
  Report Type: 
  Country: None (occurrence: None)
  Receive Date: 20090415
  Receipt Date: 20090415
  Transmission Date: 20091009
  Serious: Yes (Other)
  Sender: FDA-Public Use
  Company Number: None

PATIENT
  Sex: Female
  Weight: 68.0396 kg

DRUGS (1)
  1. CHANTIX [Suspect]
     Indication: SMOKING CESSATION THERAPY
     Dosage: STARTER PACK MARCH 28 2009 UNTIL
     Dates: start: 20090328

REACTIONS (4)
  - ABNORMAL DREAMS [None]
  - DEREALISATION [None]
  - ENURESIS [None]
  - MEMORY IMPAIRMENT [None]
